FAERS Safety Report 10357231 (Version 1)
Quarter: 2014Q3

REPORT INFORMATION
  Report Type: Spontaneous
  Country: US (occurrence: None)
  Receive Date: 20140730
  Receipt Date: 20140730
  Transmission Date: 20150326
  Serious: Yes (Death, Hospitalization)
  Sender: FDA-Public Use
  Company Number: IPC201407-000369

PATIENT
  Age: 78 Year
  Sex: Male

DRUGS (10)
  1. BENDAMUSTINE (BENDAMUSTINE) (BENDAMUSTINE) [Suspect]
     Active Substance: BENDAMUSTINE
     Indication: NON-HODGKIN^S LYMPHOMA
  2. RITUXIMAB (RITUXIMAB) (RITUXIMAB) [Suspect]
     Active Substance: RITUXIMAB
     Indication: NON-HODGKIN^S LYMPHOMA
  3. VITAMIN D [Concomitant]
     Active Substance: CHOLECALCIFEROL
  4. PROCHLORPERAZINE. [Concomitant]
     Active Substance: PROCHLORPERAZINE
  5. PALONOSETRON [Suspect]
     Active Substance: PALONOSETRON
     Indication: NON-HODGKIN^S LYMPHOMA
  6. ASPIRIN (ACETYLSALICYLIC ACID) [Concomitant]
     Active Substance: ASPIRIN
  7. LORAZEPAM. [Concomitant]
     Active Substance: LORAZEPAM
  8. DEXMETHASONE [Suspect]
     Active Substance: DEXAMETHASONE
     Indication: NON-HODGKIN^S LYMPHOMA
  9. ALLOPURINOL (ALLOPURINOL) (ALLOPURINOL) [Suspect]
     Active Substance: ALLOPURINOL
     Indication: NON-HODGKIN^S LYMPHOMA
     Route: 048
  10. LEVOTHYROXINE [Concomitant]
     Active Substance: LEVOTHYROXINE

REACTIONS (16)
  - Nikolsky^s sign [None]
  - Stevens-Johnson syndrome [None]
  - Tachycardia [None]
  - Toxic epidermal necrolysis [None]
  - Rash pruritic [None]
  - Rash maculo-papular [None]
  - Oropharyngeal pain [None]
  - Pain of skin [None]
  - Skin fragility [None]
  - Hypotension [None]
  - Disease complication [None]
  - Pyrexia [None]
  - Fatigue [None]
  - Asthenia [None]
  - Skin exfoliation [None]
  - Blood urea increased [None]
